FAERS Safety Report 5838524-2 (Version None)
Quarter: 2008Q3

REPORT INFORMATION
  Report Type: 
  Country: None (occurrence: None)
  Receive Date: 20080808
  Receipt Date: 20080729
  Transmission Date: 20090109
  Serious: Yes (Hospitalization)
  Sender: FDA-Public Use
  Company Number: JP-ROCHE-561611

PATIENT
  Sex: Male
  Weight: 50.5 kg

DRUGS (9)
  1. METHOXY POLYETHYLENE GLYCOL-EPOETIN BETA [Suspect]
     Route: 042
     Dates: start: 20070613
  2. METHOXY POLYETHYLENE GLYCOL-EPOETIN BETA [Suspect]
     Route: 042
     Dates: start: 20070713, end: 20070808
  3. METHOXY POLYETHYLENE GLYCOL-EPOETIN BETA [Suspect]
     Route: 042
     Dates: start: 20070808, end: 20070905
  4. METHOXY POLYETHYLENE GLYCOL-EPOETIN BETA [Suspect]
     Route: 042
     Dates: start: 20070905, end: 20071031
  5. METHOXY POLYETHYLENE GLYCOL-EPOETIN BETA [Suspect]
     Route: 042
     Dates: start: 20071031, end: 20080416
  6. SENNOSIDE [Concomitant]
     Dates: start: 20070808
  7. ENSURE LIQUID [Concomitant]
     Dosage: ENSURE LIQUID IS IN THE FORM OF ^TUBE OR ORAL FEEDING^. THERAPY STARTED BEFORE THE INITIATION OF TH+
  8. ALENDRONATE SODIUM [Concomitant]
     Dosage: DRUG NAME REPORTED ALENDRONATE SODIUM HYDRATE
     Dates: start: 20071119
  9. MAGNESIUM OXIDE [Concomitant]
     Dates: end: 20070807

REACTIONS (2)
  - ATRIOVENTRICULAR BLOCK SECOND DEGREE [None]
  - INTESTINAL ISCHAEMIA [None]
